FAERS Safety Report 11597786 (Version 1)
Quarter: 2015Q4

REPORT INFORMATION
  Report Type: Spontaneous
  Country: US (occurrence: US)
  Receive Date: 20151006
  Receipt Date: 20151006
  Transmission Date: 20160304
  Serious: Yes (Other)
  Sender: FDA-Public Use
  Company Number: US-PFIZER INC-2015324851

PATIENT

DRUGS (2)
  1. PHENYTOIN SODIUM. [Suspect]
     Active Substance: PHENYTOIN SODIUM
     Dosage: UNK
  2. DILANTIN [Suspect]
     Active Substance: PHENYTOIN
     Dosage: 300 MG, 1X/DAY

REACTIONS (7)
  - Seizure [Unknown]
  - Headache [Unknown]
  - Gait disturbance [Unknown]
  - Product taste abnormal [Unknown]
  - Vision blurred [Unknown]
  - Feeling abnormal [Unknown]
  - Product odour abnormal [Unknown]
